FAERS Safety Report 7834006-7 (Version None)
Quarter: 2011Q4

REPORT INFORMATION
  Report Type: 
  Country: None (occurrence: None)
  Receive Date: 20111024
  Receipt Date: 20111018
  Transmission Date: 20120403
  Serious: Yes (Life-Threatening, Hospitalization, Other)
  Sender: FDA-Public Use
  Company Number: US-ASTRAZENECA-2010SE31448

PATIENT
  Age: 68 Year
  Sex: Female
  Weight: 64.4 kg

DRUGS (24)
  1. ASPIRIN [Concomitant]
     Route: 048
  2. ASPIRIN [Concomitant]
     Route: 048
  3. TRILIPIX [Concomitant]
     Route: 048
  4. NITROSTAT [Concomitant]
     Indication: ANGINA PECTORIS
     Dosage: ONE UNDER TONGUE EVERY 5 MINUTES UPTO 3 TOTAL AS NEEDED
     Route: 060
  5. COREG [Concomitant]
  6. CRESTOR [Suspect]
     Route: 048
  7. TRILIPIX [Concomitant]
     Route: 048
  8. VITAMIN D [Concomitant]
     Route: 048
  9. AMLODIPINE [Concomitant]
  10. CRESTOR [Suspect]
     Indication: HYPERCHOLESTEROLAEMIA
     Route: 048
  11. CALCIUM CARBONATE [Concomitant]
     Route: 048
  12. MAGNESIUM [Concomitant]
  13. METOPROLOL TARTRATE [Concomitant]
     Route: 048
  14. PLAVIX [Concomitant]
     Route: 048
  15. MULTI-VITAMIN [Concomitant]
     Dosage: 1 EVERY DAY WITH FOOD
     Route: 048
  16. CALCIUM CARBONATE [Concomitant]
     Route: 048
  17. CALCIUM CARBONATE [Concomitant]
     Route: 048
  18. DARVOCET-N 50 [Concomitant]
     Indication: PAIN
     Dosage: 100-650 MG EVERY 4-6 HOURS AS NEEDED
     Route: 048
  19. PLAVIX [Concomitant]
     Route: 048
  20. BLOOD THINNERS [Concomitant]
  21. AMBIEN [Concomitant]
     Indication: SLEEP DISORDER
     Dosage: AS NEEDED
  22. ASPIRIN [Concomitant]
     Route: 048
  23. PEPCID AC [Concomitant]
     Route: 048
  24. CALCIUM CARBONATE [Concomitant]
     Dosage: 630 MG DAILY WITH 500 UNITS OF VITAMIN D
     Route: 048

REACTIONS (9)
  - HYPERTENSION [None]
  - CORONARY ARTERY DISEASE [None]
  - HYPERTRIGLYCERIDAEMIA [None]
  - CORONARY ARTERY OCCLUSION [None]
  - HYPERCHOLESTEROLAEMIA [None]
  - GASTROOESOPHAGEAL REFLUX DISEASE [None]
  - POST PROCEDURAL MYOCARDIAL INFARCTION [None]
  - ATRIAL FIBRILLATION [None]
  - IN-STENT CORONARY ARTERY RESTENOSIS [None]
